FAERS Safety Report 6982640-9 (Version None)
Quarter: 2010Q3

REPORT INFORMATION
  Report Type: 
  Country: None (occurrence: None)
  Receive Date: 20100909
  Receipt Date: 20100907
  Transmission Date: 20110219
  Serious: Yes (Life-Threatening, Hospitalization)
  Sender: FDA-Public Use
  Company Number: 1000015873

PATIENT
  Age: 65 Year
  Sex: Female
  Weight: 86.81 kg

DRUGS (14)
  1. MILNACIPRAN (MILNACIPRAN HYDROCHLORIDE) [Suspect]
     Indication: FIBROMYALGIA
     Dosage: 100 MG (50 MG, 2 IN 1 D), ORAL; 125 MG (125 MG, 1 IN 1 D), ORAL
     Route: 048
     Dates: start: 20100810, end: 20100816
  2. MILNACIPRAN (MILNACIPRAN HYDROCHLORIDE) [Suspect]
     Indication: FIBROMYALGIA
     Dosage: 100 MG (50 MG, 2 IN 1 D), ORAL; 125 MG (125 MG, 1 IN 1 D), ORAL
     Route: 048
     Dates: start: 20100817, end: 20100819
  3. DULOXETINE [Suspect]
     Indication: FIBROMYALGIA
     Dosage: 60 MG (60 MG, 1 IN 1 D), ORAL
     Route: 048
     Dates: start: 20100501, end: 20100809
  4. BYETTA [Concomitant]
  5. METFORMIN [Concomitant]
  6. LISINOPRIL [Concomitant]
  7. HYDROCHLOROTHIAZIDE [Concomitant]
  8. SIMVASTATIN [Concomitant]
  9. TRILIPIX [Concomitant]
  10. LOPRESSOR [Concomitant]
  11. AMBIEN [Concomitant]
  12. VICODIN [Concomitant]
  13. CALCIUM WITH VITAMIN D [Concomitant]
  14. TYLENOL [Concomitant]

REACTIONS (13)
  - ANXIETY [None]
  - BLOOD GLUCOSE INCREASED [None]
  - BLOOD PRESSURE SYSTOLIC INCREASED [None]
  - DEPRESSION [None]
  - DYSPHAGIA [None]
  - GENERALISED ERYTHEMA [None]
  - LOCAL SWELLING [None]
  - RASH GENERALISED [None]
  - TACHYCARDIA [None]
  - TACHYPNOEA [None]
  - TREATMENT FAILURE [None]
  - URTICARIA [None]
  - WHITE BLOOD CELL COUNT INCREASED [None]
